FAERS Safety Report 4693683-2 (Version None)
Quarter: 2005Q2

REPORT INFORMATION
  Report Type: 
  Country: None (occurrence: None)
  Receive Date: 20050615
  Receipt Date: 20050602
  Transmission Date: 20051028
  Serious: Yes (Other)
  Sender: FDA-Public Use
  Company Number: 2004118174

PATIENT
  Age: 30 Year
  Sex: Female
  Weight: 53.5244 kg

DRUGS (3)
  1. DEPO-PROVERA [Suspect]
     Indication: CONTRACEPTION
     Dosage: FIRST INJECTION, EVERY 90 DAYS, INTRAMUSCULAR
     Route: 030
     Dates: start: 20030901, end: 20030901
  2. VITAMIN E [Concomitant]
  3. CALCIUM GLUCONATE [Concomitant]

REACTIONS (9)
  - ASTHENIA [None]
  - CONCUSSION [None]
  - DIZZINESS [None]
  - HAND FRACTURE [None]
  - HEPATITIS A ANTIBODY POSITIVE [None]
  - HEPATITIS B ANTIBODY POSITIVE [None]
  - HEPATITIS C ANTIBODY POSITIVE [None]
  - LIMB INJURY [None]
  - OEDEMA PERIPHERAL [None]
